FAERS Safety Report 22228390 (Version 1)
Quarter: 2023Q2

REPORT INFORMATION
  Report Type: Spontaneous
  Country: US (occurrence: US)
  Receive Date: 20230419
  Receipt Date: 20230419
  Transmission Date: 20230721
  Serious: No
  Sender: FDA-Public Use
  Company Number: US-PFIZER INC-202300157849

PATIENT
  Age: 76 Year
  Sex: Male
  Weight: 71.21 kg

DRUGS (2)
  1. NURTEC ODT [Suspect]
     Active Substance: RIMEGEPANT SULFATE
     Indication: Migraine with aura
     Dosage: 75 MG, ALTERNATE DAY
     Route: 060
     Dates: start: 202304
  2. LORAZEPAM [Concomitant]
     Active Substance: LORAZEPAM
     Indication: Sleep disorder
     Dosage: 1 MG, DAILY (NIGHTLY)
     Dates: start: 202303

REACTIONS (1)
  - Brain fog [Recovered/Resolved]
